FAERS Safety Report 9407326 (Version 1)
Quarter: 2013Q3

REPORT INFORMATION
  Report Type: Report from Study
  Country: US (occurrence: US)
  Receive Date: 20130718
  Receipt Date: 20130718
  Transmission Date: 20140515
  Serious: Yes (Hospitalization)
  Sender: FDA-Public Use
  Company Number: US-PFIZER INC-2013188898

PATIENT
  Age: 60 Year
  Sex: Female
  Weight: 49.9 kg

DRUGS (15)
  1. OXALIPLATIN [Suspect]
     Indication: ADENOCARCINOMA OF COLON
     Dosage: 96 MG, CYCLIC
     Route: 042
     Dates: start: 20130313, end: 20130619
  2. FLUOROURACIL [Suspect]
     Indication: ADENOCARCINOMA OF COLON
     Dosage: 5FU IVP: 452 MG IV, CYCLIC
     Route: 042
     Dates: start: 20130313, end: 20130619
  3. FLUOROURACIL [Suspect]
     Dosage: 5FU CONTINUOUS 24H INFUSION: 2712 MG IV, CYCLIC
     Route: 042
     Dates: start: 20130313, end: 20130619
  4. AVASTIN [Suspect]
     Indication: ADENOCARCINOMA OF COLON
     Dosage: 276 MG, CYCLIC
     Route: 042
     Dates: start: 20130313, end: 20130605
  5. LEUCOVORIN [Suspect]
     Indication: ADENOCARCINOMA OF COLON
     Dosage: 452 MG, CYCLIC
     Route: 042
     Dates: start: 20130313, end: 20130619
  6. DIOVAN [Concomitant]
     Indication: HYPERTENSION
     Dosage: VALSARTAN (80 MG TAB) DOSE: 1 TAB QD
     Dates: start: 19840101
  7. ATIVAN [Concomitant]
     Indication: NAUSEA
     Dosage: 0.5 MG TAB, DOSE: 1 TAB (EVERY 6 HOURS) PRN
     Dates: start: 20130313
  8. TAGAMET [Concomitant]
     Indication: DIVERTICULUM
     Dosage: 400 MG, 2X/DAY
     Dates: start: 20130328
  9. MELATONIN [Concomitant]
     Indication: INSOMNIA
     Dosage: 5 MG, HS
     Dates: start: 201304
  10. MEGACE [Concomitant]
     Indication: DECREASED APPETITE
     Dosage: 5 ML, 1X/DAY
     Dates: start: 20130418
  11. MEGACE [Concomitant]
     Indication: WEIGHT DECREASED
  12. COMPAZINE [Concomitant]
     Indication: NAUSEA
     Dosage: 10 MG, AS NEEDED (TWICE DAILY)
     Dates: start: 201303
  13. PROVIGIL [Concomitant]
     Indication: FATIGUE
     Dosage: 100 MG, 1X/DAY
     Dates: start: 20130619
  14. OXYCODONE [Concomitant]
     Indication: ABDOMINAL PAIN
     Dosage: 5 MG, AS NEEDED, DOSE: (1-2 TABLETS EVERY 6 HOURS)
     Dates: start: 201303
  15. OXYCONTIN [Concomitant]
     Indication: ABDOMINAL PAIN
     Dosage: 20 MG, 2X/DAY
     Dates: start: 201303

REACTIONS (2)
  - Chest pain [Recovered/Resolved]
  - Ventricular tachycardia [Recovered/Resolved]
